FAERS Safety Report 7582829-4 (Version None)
Quarter: 2011Q2

REPORT INFORMATION
  Report Type: 
  Country: None (occurrence: None)
  Receive Date: 20110630
  Receipt Date: 20110627
  Transmission Date: 20111010
  Serious: Yes (Other)
  Sender: FDA-Public Use
  Company Number: US-PFIZER INC-2011143891

PATIENT
  Sex: Male

DRUGS (1)
  1. CHANTIX [Suspect]
     Dosage: UNK
     Dates: start: 20080530

REACTIONS (14)
  - SUICIDAL IDEATION [None]
  - BIPOLAR DISORDER [None]
  - AGITATION [None]
  - LETHARGY [None]
  - SLEEP DISORDER [None]
  - THINKING ABNORMAL [None]
  - DISTURBANCE IN ATTENTION [None]
  - DISORIENTATION [None]
  - ANXIETY [None]
  - AGGRESSION [None]
  - ABNORMAL DREAMS [None]
  - RESTLESSNESS [None]
  - MOOD SWINGS [None]
  - IRRITABILITY [None]
